FAERS Safety Report 9060340 (Version 1)
Quarter: 2013Q1

REPORT INFORMATION
  Report Type: Report from Study
  Country: US (occurrence: US)
  Receive Date: 20130212
  Receipt Date: 20130212
  Transmission Date: 20140127
  Serious: Yes (Death)
  Sender: FDA-Public Use
  Company Number: US-ROCHE-1190069

PATIENT
  Sex: Female

DRUGS (3)
  1. XELODA [Suspect]
     Indication: COLORECTAL CANCER METASTATIC
     Route: 048
     Dates: start: 201209, end: 201211
  2. OXALIPLATIN [Concomitant]
     Indication: COLORECTAL CANCER METASTATIC
  3. DOXORUBICIN [Concomitant]
     Indication: COLORECTAL CANCER METASTATIC

REACTIONS (2)
  - Death [Fatal]
  - Disease progression [Unknown]
